FAERS Safety Report 8525616 (Version 3)
Quarter: 2013Q4

REPORT INFORMATION
  Report Type: Spontaneous
  Country: US (occurrence: US)
  Receive Date: 20120423
  Receipt Date: 20131025
  Transmission Date: 20140711
  Serious: Yes (Death, Other)
  Sender: FDA-Public Use
  Company Number: US-PFIZER INC-2012095403

PATIENT
  Age: 69 Year
  Sex: Female
  Weight: 69.4 kg

DRUGS (4)
  1. LYRICA [Suspect]
     Indication: NEURALGIA
     Dosage: 50 MG, 3X/DAY
     Route: 048
  2. LYRICA [Suspect]
     Indication: SCLERODERMA
  3. ADCIRCA [Concomitant]
     Indication: SCLERODERMA
     Dosage: UNK
  4. ADCIRCA [Concomitant]
     Indication: PULMONARY HYPERTENSION

REACTIONS (4)
  - Death [Fatal]
  - Musculoskeletal discomfort [Unknown]
  - Herpes zoster [Not Recovered/Not Resolved]
  - Neuralgia [Not Recovered/Not Resolved]
